FAERS Safety Report 10219441 (Version 1)
Quarter: 2014Q2

REPORT INFORMATION
  Report Type: Spontaneous
  Country: US (occurrence: US)
  Receive Date: 20140605
  Receipt Date: 20140605
  Transmission Date: 20141212
  Serious: No
  Sender: FDA-Public Use
  Company Number: US-PFIZER INC-2014153314

PATIENT
  Sex: Female

DRUGS (2)
  1. LYRICA [Suspect]
     Dosage: UNK
     Dates: start: 2013
  2. LYRICA [Suspect]
     Dosage: UNK
     Dates: start: 201405

REACTIONS (6)
  - Weight increased [Unknown]
  - Fluid retention [Unknown]
  - Blood pressure fluctuation [Unknown]
  - Dizziness [Unknown]
  - Polydipsia [Unknown]
  - Pulse abnormal [Unknown]
